FAERS Safety Report 7196639-3 (Version None)
Quarter: 2010Q4

REPORT INFORMATION
  Report Type: 
  Country: None (occurrence: None)
  Receive Date: 20101223
  Receipt Date: 20101028
  Transmission Date: 20110411
  Serious: No
  Sender: FDA-Public Use
  Company Number: US-AMGEN-USASP2010003289

PATIENT

DRUGS (7)
  1. ENBREL [Suspect]
     Indication: PRODUCT USED FOR UNKNOWN INDICATION
  2. METHOTREXATE [Concomitant]
     Dosage: 2.5 MG, UNK
  3. ULTRAM ER [Concomitant]
     Dosage: 100 MG, UNK
  4. ALLEGRA [Concomitant]
     Dosage: 180 MG, UNK
  5. FOLIC ACID [Concomitant]
     Dosage: 1 MG, UNK
  6. PRILOSEC [Concomitant]
     Dosage: 10 MG, UNK
  7. SKELAXIN [Concomitant]
     Dosage: 800 MG, UNK

REACTIONS (1)
  - UPPER RESPIRATORY TRACT INFECTION [None]
